FAERS Safety Report 9465479 (Version 4)
Quarter: 2013Q4

REPORT INFORMATION
  Report Type: Spontaneous
  Country: US (occurrence: US)
  Receive Date: 20130820
  Receipt Date: 20131015
  Transmission Date: 20140711
  Serious: Yes (Other)
  Sender: FDA-Public Use
  Company Number: PHEH2013US017276

PATIENT
  Age: 81 Year
  Sex: Male

DRUGS (15)
  1. ZOMETA [Suspect]
     Indication: PLASMA CELL MYELOMA
     Dosage: 3.5 MG, EVERY FOUR WEEKS
     Route: 042
     Dates: start: 20070508
  2. ZOMETA [Suspect]
     Dosage: 3.5 MG, EVERY FOUR WEEKS
     Route: 042
     Dates: start: 20120816
  3. VELCADE [Concomitant]
     Dosage: 1 UKN, QD (1 A DAY FOR 4 WEEKS AND THEN 13 DAYS OFF)
  4. BIOTEX [Concomitant]
     Dosage: UNK UKN, UNK
  5. BYSTOLIC [Concomitant]
     Dosage: 10 MG, UNK
  6. DILTIAZEM [Concomitant]
     Dosage: 120 MG, UNK
  7. WARFARIN [Concomitant]
     Dosage: 5 MG, UNK
  8. DIGOXIN [Concomitant]
     Dosage: 0.125 MG, UNK
  9. SIMVASTATIN [Concomitant]
     Dosage: UNK UKN, UNK
  10. ACYCLOVIR [Concomitant]
     Dosage: 400 MG, UNK
  11. CYMBALTA [Concomitant]
     Dosage: 60 MG, UNK
  12. CLINDAMYCIN [Concomitant]
     Dosage: 300 MG, QID
  13. CHLORHEXIDINE [Concomitant]
     Dosage: UNK UKN, TID
  14. REVLIMID [Concomitant]
     Indication: PLASMA CELL MYELOMA
     Dosage: 15 MG, UNK
     Route: 048
     Dates: start: 200706, end: 200802
  15. DEXAMETHASONE [Concomitant]
     Indication: PLASMA CELL MYELOMA
     Dosage: 40 MG, Q WEEK
     Route: 048
     Dates: start: 200705, end: 200802

REACTIONS (12)
  - Atrial fibrillation [Unknown]
  - Palpitations [Unknown]
  - Osteonecrosis of jaw [Not Recovered/Not Resolved]
  - Tooth loss [Unknown]
  - Impaired healing [Unknown]
  - Osteomyelitis [Unknown]
  - Mouth haemorrhage [Unknown]
  - Stomatitis [Unknown]
  - Oral infection [Unknown]
  - Pain [Unknown]
  - Bone disorder [Unknown]
  - Dyspepsia [Unknown]
